FAERS Safety Report 20476094 (Version 2)
Quarter: 2022Q4

REPORT INFORMATION
  Report Type: Spontaneous
  Country: DE (occurrence: DE)
  Receive Date: 20220215
  Receipt Date: 20221021
  Transmission Date: 20230113
  Serious: Yes (Other)
  Sender: FDA-Public Use
  Company Number: DE-009507513-2202DEU003049

PATIENT
  Age: 55 Year
  Sex: Male

DRUGS (1)
  1. PEMBROLIZUMAB [Suspect]
     Active Substance: PEMBROLIZUMAB
     Indication: Adenocarcinoma of colon
     Dosage: 200 MILLIGRAM/SQ. METER, Q3W
     Dates: start: 201712, end: 2018

REACTIONS (3)
  - Tumour pseudoprogression [Recovering/Resolving]
  - Immune-mediated hepatic disorder [Unknown]
  - Drug resistance [Unknown]
